FAERS Safety Report 19331670 (Version 3)
Quarter: 2022Q2

REPORT INFORMATION
  Report Type: Report from Study
  Country: US (occurrence: US)
  Receive Date: 20210529
  Receipt Date: 20220524
  Transmission Date: 20220721
  Serious: Yes (Hospitalization, Other)
  Sender: FDA-Public Use
  Company Number: US-ABBVIE-21K-163-3844962-00

PATIENT
  Sex: Female
  Weight: 70.370 kg

DRUGS (15)
  1. HUMIRA [Suspect]
     Active Substance: ADALIMUMAB
     Indication: Psoriasis
     Dosage: CITRATE FREE
     Route: 058
     Dates: end: 2010
  2. HUMIRA [Suspect]
     Active Substance: ADALIMUMAB
     Indication: Rheumatoid arthritis
     Route: 058
     Dates: start: 2011
  3. HUMIRA [Suspect]
     Active Substance: ADALIMUMAB
     Route: 058
  4. PFIZER-BIONTECH COVID-19 VACCINE [Suspect]
     Active Substance: TOZINAMERAN
     Indication: COVID-19 immunisation
     Dosage: PFIZER
     Route: 030
     Dates: start: 202102, end: 202102
  5. PFIZER-BIONTECH COVID-19 VACCINE [Suspect]
     Active Substance: TOZINAMERAN
     Dosage: PFIZER
     Route: 030
     Dates: start: 202103, end: 202103
  6. ATORVASTATIN [Concomitant]
     Active Substance: ATORVASTATIN
     Indication: Product used for unknown indication
  7. ASPIRIN [Concomitant]
     Active Substance: ASPIRIN
     Indication: Product used for unknown indication
  8. VITAMINS [Concomitant]
     Active Substance: VITAMINS
     Indication: Product used for unknown indication
  9. HYDROCHLOROTHIAZIDE\LOSARTAN [Concomitant]
     Active Substance: HYDROCHLOROTHIAZIDE\LOSARTAN
     Indication: Product used for unknown indication
  10. ALENDRONATE SODIUM [Concomitant]
     Active Substance: ALENDRONATE SODIUM
     Indication: Product used for unknown indication
  11. SIMVASTATIN [Concomitant]
     Active Substance: SIMVASTATIN
     Indication: Product used for unknown indication
  12. ALENDRONATE [Concomitant]
     Active Substance: ALENDRONATE SODIUM
     Indication: Product used for unknown indication
  13. GABAPENTIN [Concomitant]
     Active Substance: GABAPENTIN
     Indication: Product used for unknown indication
  14. LOSARTAN [Concomitant]
     Active Substance: LOSARTAN
     Indication: Product used for unknown indication
     Dosage: 100/25
  15. OXYGEN [Concomitant]
     Active Substance: OXYGEN
     Indication: Product used for unknown indication
     Dosage: AT NIGHT

REACTIONS (21)
  - Head injury [Recovered/Resolved]
  - Thrombosis [Recovered/Resolved]
  - Pulmonary thrombosis [Recovered/Resolved]
  - SARS-CoV-2 test positive [Unknown]
  - Musculoskeletal disorder [Recovering/Resolving]
  - Cerebrovascular accident [Recovering/Resolving]
  - Fall [Recovered/Resolved]
  - Pneumonia [Unknown]
  - Pneumonia bacterial [Recovered/Resolved]
  - Pulmonary fibrosis [Not Recovered/Not Resolved]
  - COVID-19 pneumonia [Recovered/Resolved]
  - COVID-19 pneumonia [Unknown]
  - Limb injury [Unknown]
  - Chronic pigmented purpura [Recovered/Resolved]
  - Head injury [Unknown]
  - Chronic obstructive pulmonary disease [Not Recovered/Not Resolved]
  - Fall [Recovering/Resolving]
  - Rash [Not Recovered/Not Resolved]
  - Alopecia [Not Recovered/Not Resolved]
  - Rash macular [Recovered/Resolved]
  - Bacterial infection [Unknown]

NARRATIVE: CASE EVENT DATE: 20100101
